FAERS Safety Report 5626274-7 (Version None)
Quarter: 2008Q1

REPORT INFORMATION
  Report Type: 
  Country: None (occurrence: None)
  Receive Date: 20080213
  Receipt Date: 20080213
  Transmission Date: 20080703
  Serious: No
  Sender: FDA-Public Use
  Company Number: None

PATIENT
  Age: 61 Year
  Sex: Male
  Weight: 66.2252 kg

DRUGS (2)
  1. ZETIA [Suspect]
     Indication: BLOOD CHOLESTEROL
     Dosage: 10MG 1 PILL A DAY
     Dates: start: 20071113, end: 20071118
  2. ZETIA [Suspect]
     Indication: BLOOD CHOLESTEROL
     Dosage: 10MG 1 PILL A DAY
     Dates: start: 20071124, end: 20071230

REACTIONS (1)
  - ABDOMINAL PAIN UPPER [None]
